FAERS Safety Report 12780078 (Version 1)
Quarter: 2016Q3

REPORT INFORMATION
  Report Type: Spontaneous
  Country: US (occurrence: US)
  Receive Date: 20160926
  Receipt Date: 20160926
  Transmission Date: 20161109
  Serious: Yes (Other)
  Sender: FDA-Public Use
  Company Number: None

PATIENT
  Age: 90 Year
  Sex: Male
  Weight: 77.11 kg

DRUGS (7)
  1. DUTASTERIDE. [Suspect]
     Active Substance: DUTASTERIDE
  2. LISINOPRIL. [Concomitant]
     Active Substance: LISINOPRIL
  3. ASPIRIN. [Concomitant]
     Active Substance: ASPIRIN
  4. DORZOLAMIDE [Concomitant]
     Active Substance: DORZOLAMIDE
  5. TIMOLOL. [Concomitant]
     Active Substance: TIMOLOL
  6. TAMSULOSIN CAP 0.4MG SUN PHARMACEUTICAL [Suspect]
     Active Substance: TAMSULOSIN
     Indication: PROSTATOMEGALY
     Route: 048
  7. METOPROLOL TARTRATE. [Concomitant]
     Active Substance: METOPROLOL TARTRATE

REACTIONS (5)
  - Urinary retention [None]
  - Insomnia [None]
  - Nocturia [None]
  - Product outer packaging issue [None]
  - Bladder disorder [None]

NARRATIVE: CASE EVENT DATE: 20160710
